FAERS Safety Report 23457075 (Version 1)
Quarter: 2024Q1

REPORT INFORMATION
  Report Type: Spontaneous
  Country: None (occurrence: ES)
  Receive Date: 20240130
  Receipt Date: 20240130
  Transmission Date: 20240410
  Serious: Yes (Death)
  Sender: FDA-Public Use
  Company Number: ES-B.Braun Medical Inc.-2152307

PATIENT
  Age: 74 Year
  Sex: Male

DRUGS (1)
  1. HEPARIN SODIUM IN DEXTROSE [Suspect]
     Active Substance: HEPARIN SODIUM
     Indication: Atrial fibrillation

REACTIONS (8)
  - Product use in unapproved indication [None]
  - Dyspnoea [None]
  - Intracardiac mass [None]
  - Pleural effusion [None]
  - Pericardial effusion [None]
  - Chest pain [None]
  - Pulmonary embolism [None]
  - Drug ineffective [None]
